FAERS Safety Report 19171365 (Version 1)
Quarter: 2021Q2

REPORT INFORMATION
  Report Type: Spontaneous
  Country: US (occurrence: US)
  Receive Date: 20210423
  Receipt Date: 20210423
  Transmission Date: 20210717
  Serious: No
  Sender: FDA-Public Use
  Company Number: US-TEVA-2021-US-1896188

PATIENT
  Sex: Male
  Weight: 101.6 kg

DRUGS (3)
  1. AUSTEDO [Suspect]
     Active Substance: DEUTETRABENAZINE
     Dosage: 12 MILLIGRAM DAILY; INITIAL THERAPY START; WEEK 1
     Route: 048
     Dates: start: 20210317
  2. AUSTEDO [Suspect]
     Active Substance: DEUTETRABENAZINE
     Dosage: WEEK 2: USE OTHER STRENGTHS
     Route: 048
  3. AUSTEDO [Suspect]
     Active Substance: DEUTETRABENAZINE
     Dosage: 30 MILLIGRAM DAILY; WEEK 3: TAKE A 6 MG WITH A 9 MG TWICE A DAY
     Route: 048

REACTIONS (3)
  - Insomnia [Unknown]
  - Sleep disorder [Unknown]
  - Initial insomnia [Unknown]
